FAERS Safety Report 14447046 (Version 1)
Quarter: 2018Q1

REPORT INFORMATION
  Report Type: Spontaneous
  Country: US (occurrence: US)
  Receive Date: 20180126
  Receipt Date: 20180126
  Transmission Date: 20180509
  Serious: Yes (Life-Threatening, Hospitalization, Disabling)
  Sender: FDA-Public Use
  Company Number: None

PATIENT
  Sex: Female
  Weight: 72 kg

DRUGS (4)
  1. GILOTRIF [Suspect]
     Active Substance: AFATINIB
     Indication: SMALL CELL LUNG CANCER
     Dosage: ?          QUANTITY:1 TABLET(S);?
     Route: 048
  2. SLEEP MEDICATION [Concomitant]
     Active Substance: UNSPECIFIED INGREDIENT
  3. STEROID PRESCRIPTION [Concomitant]
  4. OXYGEN. [Concomitant]
     Active Substance: OXYGEN

REACTIONS (4)
  - Diarrhoea [None]
  - Dehydration [None]
  - Traumatic lung injury [None]
  - Dyspnoea [None]

NARRATIVE: CASE EVENT DATE: 20180108
